FAERS Safety Report 5097859-4 (Version None)
Quarter: 2006Q3

REPORT INFORMATION
  Report Type: 
  Country: None (occurrence: None)
  Receive Date: 20060905
  Receipt Date: 20060822
  Transmission Date: 20061208
  Serious: Yes (Life-Threatening, Hospitalization)
  Sender: FDA-Public Use
  Company Number: 02100-EUR-06-0039

PATIENT
  Age: 63 Year
  Sex: Male

DRUGS (6)
  1. CILOSTAZOL [Suspect]
     Indication: PERIPHERAL ISCHAEMIA
     Dosage: 100 MG ORAL
     Route: 048
     Dates: start: 20030501, end: 20030601
  2. ASPIRIN [Concomitant]
  3. GLIBENCLAMIDE [Concomitant]
  4. ISOSORBIDE MONONITRATE [Concomitant]
  5. METFORMIN HCL [Concomitant]
  6. TAGAMET [Concomitant]

REACTIONS (1)
  - ANGINA PECTORIS [None]
